FAERS Safety Report 5827853-4 (Version None)
Quarter: 2008Q3

REPORT INFORMATION
  Report Type: 
  Country: None (occurrence: None)
  Receive Date: 20080728
  Receipt Date: 20080716
  Transmission Date: 20090109
  Serious: Yes (Disabling)
  Sender: FDA-Public Use
  Company Number: MSTR-NO-0807S-0038

PATIENT
  Age: 67 Year
  Sex: Male

DRUGS (1)
  1. METASTRON [Suspect]
     Indication: METASTATIC PAIN
     Dosage: I.V.
     Route: 042
     Dates: start: 20080401, end: 20080401

REACTIONS (2)
  - MONOPLEGIA [None]
  - SPINAL DISORDER [None]
